FAERS Safety Report 5514942-7 (Version None)
Quarter: 2007Q4

REPORT INFORMATION
  Report Type: 
  Country: None (occurrence: None)
  Receive Date: 20071113
  Receipt Date: 20061016
  Transmission Date: 20080405
  Serious: No
  Sender: FDA-Public Use
  Company Number: A0623724A

PATIENT
  Age: 77 Year
  Sex: Female

DRUGS (2)
  1. COREG [Suspect]
     Indication: WOLFF-PARKINSON-WHITE SYNDROME
     Dosage: 3.125TAB TWICE PER DAY
     Route: 048
     Dates: start: 20060601, end: 20061004
  2. SYNTHROID [Concomitant]

REACTIONS (6)
  - ASTHENIA [None]
  - COUGH [None]
  - DIZZINESS [None]
  - FATIGUE [None]
  - LUNG DISORDER [None]
  - PHARYNGOLARYNGEAL PAIN [None]
